FAERS Safety Report 24248590 (Version 1)
Quarter: 2024Q3

REPORT INFORMATION
  Report Type: Spontaneous
  Country: US (occurrence: US)
  Receive Date: 20240826
  Receipt Date: 20240826
  Transmission Date: 20241017
  Serious: Yes (Death)
  Sender: PFIZER
  Company Number: US-PFIZER INC-202400243147

PATIENT
  Age: 79 Year
  Sex: Female

DRUGS (1)
  1. IBRANCE [Suspect]
     Active Substance: PALBOCICLIB
     Dosage: 100 MG, 21 DAYS ON 7 DAYS OFF
     Route: 048

REACTIONS (1)
  - Death [Fatal]
